FAERS Safety Report 24814404 (Version 1)
Quarter: 2025Q1

REPORT INFORMATION
  Report Type: Spontaneous
  Country: DE (occurrence: DE)
  Receive Date: 20250107
  Receipt Date: 20250107
  Transmission Date: 20250408
  Serious: Yes (Hospitalization, Other)
  Sender: ACCORD
  Company Number: DE-TILLOMEDPR-2024-EPL-005740

PATIENT
  Age: 30 Month
  Sex: Male

DRUGS (1)
  1. BUSULFAN [Suspect]
     Active Substance: BUSULFAN
     Indication: Autologous haematopoietic stem cell transplant

REACTIONS (3)
  - Traumatic lung injury [Recovered/Resolved]
  - Venoocclusive liver disease [Recovered/Resolved]
  - Pulmonary toxicity [Recovered/Resolved]
